FAERS Safety Report 7287493-X (Version None)
Quarter: 2011Q1

REPORT INFORMATION
  Report Type: 
  Country: None (occurrence: None)
  Receive Date: 20110211
  Receipt Date: 20110209
  Transmission Date: 20110831
  Serious: Yes (Other)
  Sender: FDA-Public Use
  Company Number: PH-BRISTOL-MYERS SQUIBB COMPANY-15527336

PATIENT
  Age: 40 Year
  Sex: Female

DRUGS (1)
  1. ONGLYZA [Suspect]
     Indication: TYPE 2 DIABETES MELLITUS
     Dosage: STARTED: 1ST WEEK DEC10;INTRPTED ON 24DEC10,RESTARTED ON 12-13JAN10,STOPPED ON17-18JAN10.
     Dates: start: 20101201, end: 20110101

REACTIONS (2)
  - COSTOCHONDRITIS [None]
  - ARTHRALGIA [None]
